FAERS Safety Report 5257830-6 (Version None)
Quarter: 2007Q1

REPORT INFORMATION
  Report Type: 
  Country: None (occurrence: None)
  Receive Date: 20070307
  Receipt Date: 20070223
  Transmission Date: 20070707
  Serious: Yes (Other)
  Sender: FDA-Public Use
  Company Number: AU-PFIZER INC-2007002844

PATIENT
  Sex: Male

DRUGS (6)
  1. CABASER [Suspect]
     Route: 048
  2. LEVOTHYROXINE SODIUM [Concomitant]
  3. LIPITOR [Concomitant]
     Route: 048
  4. PLAVIX [Concomitant]
     Route: 048
  5. KARVEZIDE [Concomitant]
     Route: 048
  6. PANTOPRAZOLE SODIUM [Concomitant]
     Route: 048

REACTIONS (4)
  - FATIGUE [None]
  - HYPERSOMNIA [None]
  - INITIAL INSOMNIA [None]
  - SOMNOLENCE [None]
